FAERS Safety Report 5273314-3 (Version None)
Quarter: 2007Q1

REPORT INFORMATION
  Report Type: 
  Country: None (occurrence: None)
  Receive Date: 20070319
  Receipt Date: 20070306
  Transmission Date: 20070707
  Serious: Yes (Other)
  Sender: FDA-Public Use
  Company Number: 2007SP004490

PATIENT
  Age: 45 Year
  Sex: Female

DRUGS (2)
  1. PEG-INTRON [Suspect]
     Indication: HEPATITIS C
     Dosage: SEE IMAGE
     Route: 058
  2. REBETOL [Suspect]
     Indication: HEPATITIS C
     Dosage: 800 MG; ; PO
     Route: 048

REACTIONS (4)
  - ERYTHEMA [None]
  - EYE PRURITUS [None]
  - IRIS HYPERPIGMENTATION [None]
  - ORBITAL OEDEMA [None]
